FAERS Safety Report 20816854 (Version 1)
Quarter: 2022Q2

REPORT INFORMATION
  Report Type: Spontaneous
  Country: US (occurrence: US)
  Receive Date: 20220512
  Receipt Date: 20220512
  Transmission Date: 20220721
  Serious: Yes (Other)
  Sender: FDA-Public Use
  Company Number: US-BEH-2022145315

PATIENT
  Sex: Female

DRUGS (1)
  1. HIZENTRA [Suspect]
     Active Substance: HUMAN IMMUNOGLOBULIN G
     Dosage: 25 MILLILITER, QW
     Route: 065

REACTIONS (5)
  - Blood immunoglobulin G decreased [Unknown]
  - Osteomyelitis [Unknown]
  - Bone demineralisation [Unknown]
  - Lymphadenopathy [Unknown]
  - Therapeutic product effect incomplete [Unknown]
